FAERS Safety Report 9564544 (Version 1)
Quarter: 2013Q3

REPORT INFORMATION
  Report Type: Spontaneous
  Country: US (occurrence: US)
  Receive Date: 20130930
  Receipt Date: 20130930
  Transmission Date: 20140515
  Serious: No
  Sender: FDA-Public Use
  Company Number: US-PFIZER INC-2013277180

PATIENT
  Age: 82 Year
  Sex: Female
  Weight: 99.77 kg

DRUGS (4)
  1. CHANTIX [Suspect]
     Indication: SMOKING CESSATION THERAPY
     Dosage: 0.5 MG, 1X/DAY
     Route: 048
     Dates: start: 20130905
  2. CHANTIX [Suspect]
     Dosage: 1 MG, 2X/DAY
     Route: 048
     Dates: start: 201309, end: 201309
  3. DILAUDID [Suspect]
     Indication: PAIN
     Dosage: 2 MG, AS NEEDED
     Route: 048
     Dates: start: 20130913
  4. LISINOPRIL [Concomitant]
     Indication: HYPERTENSION
     Dosage: 20 MG, DAILY

REACTIONS (3)
  - Wheezing [Unknown]
  - Dyspnoea [Unknown]
  - Headache [Unknown]
